FAERS Safety Report 8092705-9 (Version None)
Quarter: 2012Q1

REPORT INFORMATION
  Report Type: 
  Country: None (occurrence: None)
  Receive Date: 20120128
  Receipt Date: 20110803
  Transmission Date: 20120608
  Serious: Yes (Hospitalization)
  Sender: FDA-Public Use
  Company Number: US-ABBOTT-11P-163-0844017-00

PATIENT
  Sex: Female
  Weight: 81.72 kg

DRUGS (3)
  1. HUMIRA [Suspect]
     Indication: RHEUMATOID ARTHRITIS
     Dates: start: 20100401, end: 20110101
  2. HUMIRA [Suspect]
     Dates: start: 20110601
  3. LYRICA [Concomitant]
     Indication: FIBROMYALGIA

REACTIONS (1)
  - KNEE OPERATION [None]
